FAERS Safety Report 17188199 (Version 1)
Quarter: 2019Q4

REPORT INFORMATION
  Report Type: Spontaneous
  Country: SE (occurrence: SE)
  Receive Date: 20191221
  Receipt Date: 20191221
  Transmission Date: 20200122
  Serious: Yes (Hospitalization)
  Sender: FDA-Public Use
  Company Number: SE-009507513-1912SWE007289

PATIENT
  Sex: Female

DRUGS (2)
  1. MIRTAZAPINE. [Suspect]
     Active Substance: MIRTAZAPINE
     Dosage: 60 MILLIGRAM, 2 PIECES 30 MG EACH
     Dates: start: 20180110, end: 20180110
  2. PROPAVAN [Suspect]
     Active Substance: PROPIOMAZINE
     Dosage: 50 MILLIGRAM, 2 PIECES 25 MG EACH
     Route: 048
     Dates: start: 20180110, end: 20180110

REACTIONS (3)
  - Presyncope [Unknown]
  - Dyspnoea [Unknown]
  - Accidental overdose [Unknown]

NARRATIVE: CASE EVENT DATE: 20180110
